FAERS Safety Report 8117945-1 (Version None)
Quarter: 2012Q1

REPORT INFORMATION
  Report Type: 
  Country: None (occurrence: None)
  Receive Date: 20120201
  Receipt Date: 20120120
  Transmission Date: 20120608
  Serious: Yes (Hospitalization)
  Sender: FDA-Public Use
  Company Number: AXC-2012-000016

PATIENT
  Sex: Male

DRUGS (2)
  1. FAMOTIDINE [Suspect]
     Indication: BILE DUCT STONE
     Dosage: ORAL
     Route: 048
  2. URSODIOL [Suspect]
     Indication: BILE DUCT STONE
     Dosage: ORAL
     Route: 048

REACTIONS (6)
  - LIVER DISORDER [None]
  - PROTHROMBIN TIME PROLONGED [None]
  - CHOLESTASIS [None]
  - RASH PRURITIC [None]
  - BLOOD ALKALINE PHOSPHATASE INCREASED [None]
  - BLOOD BILIRUBIN INCREASED [None]
